FAERS Safety Report 9302554 (Version 2)
Quarter: 2013Q2

REPORT INFORMATION
  Report Type: Spontaneous
  Country: DE (occurrence: DE)
  Receive Date: 20130522
  Receipt Date: 20130603
  Transmission Date: 20140414
  Serious: Yes (Hospitalization)
  Sender: FDA-Public Use
  Company Number: DE-RANBAXY-2013R1-69083

PATIENT
  Age: 63 Year
  Sex: Male
  Weight: 112 kg

DRUGS (2)
  1. MIDAZOLAM [Suspect]
     Indication: SEDATION
     Dosage: UNK
     Route: 042
  2. SCANDICAIN [Suspect]
     Indication: ANAESTHESIA
     Dosage: UNK
     Route: 053

REACTIONS (4)
  - Sneezing [Unknown]
  - Eye swelling [Unknown]
  - Eyelid oedema [Unknown]
  - Nasal oedema [Unknown]
